FAERS Safety Report 9852992 (Version 1)
Quarter: 2014Q1

REPORT INFORMATION
  Report Type: Spontaneous
  Country: VE (occurrence: VE)
  Receive Date: 20140129
  Receipt Date: 20140129
  Transmission Date: 20141002
  Serious: Yes (Other)
  Sender: FDA-Public Use
  Company Number: VE-JNJFOC-20140114244

PATIENT
  Age: 63 Year
  Sex: Female

DRUGS (2)
  1. XARELTO [Suspect]
     Indication: ATRIAL FIBRILLATION
     Route: 048
     Dates: start: 20131015
  2. XARELTO [Suspect]
     Indication: CEREBROVASCULAR ACCIDENT PROPHYLAXIS
     Route: 048
     Dates: start: 20131015

REACTIONS (3)
  - Ischaemic stroke [Recovered/Resolved]
  - Epistaxis [Recovered/Resolved]
  - Drug ineffective [Unknown]
